FAERS Safety Report 16020074 (Version 2)
Quarter: 2019Q1

REPORT INFORMATION
  Report Type: Spontaneous
  Country: JP (occurrence: JP)
  Receive Date: 20190228
  Receipt Date: 20190327
  Transmission Date: 20190418
  Serious: Yes (Other)
  Sender: FDA-Public Use
  Company Number: PHJP2019JP002557

PATIENT
  Sex: Male

DRUGS (5)
  1. ATG [Suspect]
     Active Substance: LAPINE T-LYMPHOCYTE IMMUNE GLOBULIN
     Indication: APLASTIC ANAEMIA
     Dosage: UNK
     Route: 065
  2. GRANULOCYT-CSF [Suspect]
     Active Substance: GRANULOCYTE COLONY-STIMULATING FACTOR NOS
     Indication: APLASTIC ANAEMIA
     Dosage: UNK
     Route: 065
  3. NEORAL [Suspect]
     Active Substance: CYCLOSPORINE
     Indication: APLASTIC ANAEMIA
     Dosage: UNK
     Route: 048
  4. METHENOLONE ACETATE [Concomitant]
     Active Substance: METHENOLONE ACETATE
     Indication: APLASTIC ANAEMIA
     Dosage: UNK
     Route: 065
  5. REVOLADE TAB [Concomitant]
     Active Substance: ELTROMBOPAG
     Indication: APLASTIC ANAEMIA
     Dosage: UNK
     Route: 065
     Dates: start: 20170829

REACTIONS (2)
  - Pancytopenia [Recovering/Resolving]
  - Liver abscess [Recovered/Resolved]

NARRATIVE: CASE EVENT DATE: 20170224
